FAERS Safety Report 24107511 (Version 1)
Quarter: 2024Q3

REPORT INFORMATION
  Report Type: Report from Study
  Country: US (occurrence: None)
  Receive Date: 20240718
  Receipt Date: 20240718
  Transmission Date: 20241017
  Serious: Yes (Other)
  Sender: ASTRAZENECA
  Company Number: 2020SE17960

PATIENT
  Sex: Female

DRUGS (1)
  1. LYNPARZA [Suspect]
     Active Substance: OLAPARIB
     Indication: Ovarian cancer
     Route: 048

REACTIONS (12)
  - Full blood count decreased [Unknown]
  - Insomnia [Unknown]
  - Joint injury [Unknown]
  - Musculoskeletal stiffness [Unknown]
  - Abdominal pain [Unknown]
  - Vulvovaginal pain [Unknown]
  - Hepatic pain [Unknown]
  - Feeling abnormal [Unknown]
  - Haemoglobin decreased [Unknown]
  - Dizziness [Unknown]
  - Haematocrit decreased [Unknown]
  - Product dose omission issue [Unknown]
